FAERS Safety Report 7226593-7 (Version None)
Quarter: 2011Q1

REPORT INFORMATION
  Report Type: 
  Country: None (occurrence: None)
  Receive Date: 20110105
  Receipt Date: 20101220
  Transmission Date: 20110831
  Serious: Yes (Hospitalization)
  Sender: FDA-Public Use
  Company Number: 2007000326

PATIENT
  Age: 60 Year
  Sex: Male
  Weight: 69.9 kg

DRUGS (10)
  1. BEVACIZUMAB (INECTION FOR INFUSION) [Suspect]
  2. ATIVAN [Concomitant]
  3. TUSSIONEX [Concomitant]
  4. MARINOL [Concomitant]
  5. BEVACIZUMAG (INJECTION FOR INFUSION) [Suspect]
  6. ZOLOFT (SERTARLINE HYDROCHLORIDE) [Concomitant]
  7. ALBUTEROL [Concomitant]
  8. BEVACIZUMAB (INJECTION FOR INFUSION) [Suspect]
     Indication: NON-SMALL CELL LUNG CANCER
     Dosage: 1140 MG (1140 MG, Q3W), INTRAVENOUS
     Route: 042
     Dates: start: 20070110, end: 20070212
  9. ERLOTINIB (TABLET) [Suspect]
     Indication: NON-SMALL CELL LUNG CANCER
     Dosage: 150 MG (150 MG, QD), ORAL
     Route: 048
     Dates: start: 20070110
  10. GABAPENTIN [Concomitant]

REACTIONS (1)
  - PULMONARY EMBOLISM [None]
